FAERS Safety Report 9711161 (Version 1)
Quarter: 2013Q4

REPORT INFORMATION
  Report Type: Spontaneous
  Country: US (occurrence: US)
  Receive Date: 20131126
  Receipt Date: 20131126
  Transmission Date: 20140711
  Serious: No
  Sender: FDA-Public Use
  Company Number: US-BRISTOL-MYERS SQUIBB COMPANY-19180538

PATIENT
  Age: 63 Year
  Sex: Female
  Weight: 72.56 kg

DRUGS (5)
  1. BYETTA [Suspect]
     Indication: TYPE 2 DIABETES MELLITUS
     Route: 058
  2. METFORMIN [Concomitant]
     Route: 048
  3. ACTOS [Concomitant]
     Route: 048
  4. VITAMIN B12 [Concomitant]
  5. VICTOZA [Concomitant]
     Dates: end: 201202

REACTIONS (1)
  - Weight decreased [Recovered/Resolved]
